FAERS Safety Report 10507126 (Version 2)
Quarter: 2014Q4

REPORT INFORMATION
  Report Type: Spontaneous
  Country: IN (occurrence: IN)
  Receive Date: 20141009
  Receipt Date: 20141022
  Transmission Date: 20150528
  Serious: Yes (Hospitalization, Other)
  Sender: FDA-Public Use
  Company Number: IN-RANBAXY-2014RR-86323

PATIENT
  Age: 4 Year
  Sex: Male

DRUGS (1)
  1. RISPERIDONE. [Suspect]
     Active Substance: RISPERIDONE
     Indication: PRODUCT USED FOR UNKNOWN INDICATION
     Dosage: 10 TABLETS OF 0.5 MG
     Route: 048

REACTIONS (7)
  - Accidental overdose [Recovering/Resolving]
  - Dysarthria [Unknown]
  - Somnolence [Recovered/Resolved]
  - Accidental poisoning [Recovering/Resolving]
  - Vomiting [Unknown]
  - Drooling [Unknown]
  - Muscle rigidity [Recovering/Resolving]
